FAERS Safety Report 4401493-6 (Version None)
Quarter: 2004Q3

REPORT INFORMATION
  Report Type: 
  Country: None (occurrence: None)
  Receive Date: 20040714
  Receipt Date: 20040628
  Transmission Date: 20050211
  Serious: Yes (Hospitalization, Other)
  Sender: FDA-Public Use
  Company Number: USA040671308

PATIENT
  Age: 86 Year
  Sex: Female

DRUGS (7)
  1. EVISTA [Suspect]
     Indication: OSTEOPOROSIS
     Dates: start: 20040501
  2. POTASSIUM [Concomitant]
  3. FOLIC ACID [Concomitant]
  4. IRON [Concomitant]
  5. METHOTREXATE SODIUM [Concomitant]
  6. HYDROCHLOROTHIAZIDE [Concomitant]
  7. OMEPRAZOLE [Concomitant]

REACTIONS (7)
  - ABNORMAL BEHAVIOUR [None]
  - AMNESIA [None]
  - ANAEMIA [None]
  - CONVULSION [None]
  - FEELING COLD [None]
  - GASTROINTESTINAL DISORDER [None]
  - VAGINAL DISORDER [None]
